FAERS Safety Report 9012880 (Version 1)
Quarter: 2013Q1

REPORT INFORMATION
  Report Type: Spontaneous
  Country: US (occurrence: US)
  Receive Date: 20130114
  Receipt Date: 20130114
  Transmission Date: 20140127
  Serious: Yes (Other)
  Sender: FDA-Public Use
  Company Number: US-BAYER-2013-004489

PATIENT
  Age: 72 Year
  Sex: Female

DRUGS (2)
  1. MENOSTAR [Suspect]
     Dosage: UNK
  2. PROMETRIUM [Suspect]

REACTIONS (2)
  - Sjogren^s syndrome [None]
  - Adverse event [None]
